FAERS Safety Report 12101296 (Version 1)
Quarter: 2016Q1

REPORT INFORMATION
  Report Type: Spontaneous
  Country: US (occurrence: US)
  Receive Date: 20160222
  Receipt Date: 20160222
  Transmission Date: 20160526
  Serious: No
  Sender: FDA-Public Use
  Company Number: US-BAYER-2016-033935

PATIENT
  Age: 83 Year
  Sex: Female
  Weight: 58.5 kg

DRUGS (4)
  1. OXYCODONE [Concomitant]
     Active Substance: OXYCODONE
  2. OXYBUTYNIN [Concomitant]
     Active Substance: OXYBUTYNIN
  3. ATENOLOL. [Concomitant]
     Active Substance: ATENOLOL
  4. CLARITIN-D 12 HOUR [Suspect]
     Active Substance: LORATADINE\PSEUDOEPHEDRINE SULFATE
     Indication: NASAL CONGESTION
     Dosage: 1 DF, QD
     Route: 048
     Dates: start: 201601

REACTIONS (2)
  - Product difficult to swallow [None]
  - Foreign body [Recovered/Resolved]

NARRATIVE: CASE EVENT DATE: 20160219
